FAERS Safety Report 5959596-0 (Version None)
Quarter: 2008Q4

REPORT INFORMATION
  Report Type: 
  Country: None (occurrence: None)
  Receive Date: 20081120
  Receipt Date: 20081113
  Transmission Date: 20090506
  Serious: Yes (Hospitalization)
  Sender: FDA-Public Use
  Company Number: DE-TEVA-177677ISR

PATIENT
  Sex: Female

DRUGS (6)
  1. ETOPOSIDE [Suspect]
     Indication: HODGKIN'S DISEASE
     Route: 042
     Dates: start: 20080915, end: 20080916
  2. VINCRISTINE [Suspect]
     Indication: HODGKIN'S DISEASE
  3. DOXORUBICIN HCL [Suspect]
     Indication: HODGKIN'S DISEASE
     Route: 042
     Dates: start: 20080915, end: 20080915
  4. PROCARBAZINE [Suspect]
     Indication: HODGKIN'S DISEASE
     Route: 048
     Dates: start: 20080915, end: 20080916
  5. CYCLOPHOSPHAMIDE [Suspect]
     Indication: HODGKIN'S DISEASE
     Route: 042
     Dates: start: 20080915, end: 20080915
  6. BLEOMYCIN SULFATE [Suspect]
     Indication: HODGKIN'S DISEASE

REACTIONS (8)
  - BLOOD BRAIN BARRIER DEFECT [None]
  - CONVULSION [None]
  - HEMIPARESIS [None]
  - POLYNEUROPATHY [None]
  - PSYCHOMOTOR SKILLS IMPAIRED [None]
  - TOXIC ENCEPHALOPATHY [None]
  - VISUAL FIELD DEFECT [None]
  - VISUAL IMPAIRMENT [None]
